FAERS Safety Report 6301052-4 (Version None)
Quarter: 2009Q3

REPORT INFORMATION
  Report Type: 
  Country: None (occurrence: None)
  Receive Date: 20090807
  Receipt Date: 20070719
  Transmission Date: 20100115
  Serious: Yes (Other)
  Sender: FDA-Public Use
  Company Number: US-ASTRAZENECA-2007UW06083

PATIENT
  Age: 13838 Day
  Sex: Male
  Weight: 136.1 kg

DRUGS (8)
  1. SEROQUEL [Suspect]
     Indication: SCHIZOPHRENIA
     Dosage: 200-600 MG, TWO TIMES A DAY
     Route: 048
     Dates: start: 20000101, end: 20051201
  2. SEROQUEL [Suspect]
     Dosage: 25MG - 600MG
     Route: 048
     Dates: start: 20000328
  3. RISPERDAL [Concomitant]
     Route: 048
     Dates: start: 20051201, end: 20060201
  4. TYLENOL (CAPLET) [Concomitant]
     Indication: HEADACHE
     Dates: start: 20000314
  5. HALDOL [Concomitant]
     Dosage: 2MG -5MG
     Route: 048
     Dates: start: 19890101
  6. ZOLOFT [Concomitant]
     Route: 048
     Dates: start: 20040125
  7. WELLBUTRIN [Concomitant]
     Route: 048
     Dates: start: 20040125
  8. BENZTROPINE MESYLATE [Concomitant]
     Dates: start: 20000314

REACTIONS (6)
  - DIABETIC COMPLICATION [None]
  - DIABETIC KETOACIDOSIS [None]
  - NEUROPATHY PERIPHERAL [None]
  - PANCREATITIS ACUTE [None]
  - TYPE 1 DIABETES MELLITUS [None]
  - TYPE 2 DIABETES MELLITUS [None]
